FAERS Safety Report 11589367 (Version 1)
Quarter: 2015Q4

REPORT INFORMATION
  Report Type: Spontaneous
  Country: FR (occurrence: FR)
  Receive Date: 20151002
  Receipt Date: 20151002
  Transmission Date: 20160304
  Serious: Yes (Hospitalization, Other)
  Sender: FDA-Public Use
  Company Number: FR-ABBVIE-15P-056-1471663-00

PATIENT
  Sex: Female
  Weight: 31 kg

DRUGS (20)
  1. MYAMBUTOL [Concomitant]
     Active Substance: ETHAMBUTOL HYDROCHLORIDE
     Indication: TUBERCULOSIS
     Route: 065
  2. VITAMIN B1 AND B6 [Concomitant]
     Active Substance: PYRIDOXINE HYDROCHLORIDE\THIAMINE HYDROCHLORIDE
     Indication: PRODUCT USED FOR UNKNOWN INDICATION
     Route: 065
  3. MELATONINE [Concomitant]
     Active Substance: MELATONIN
     Indication: PRODUCT USED FOR UNKNOWN INDICATION
     Route: 065
     Dates: start: 20150615
  4. NORVIR [Suspect]
     Active Substance: RITONAVIR
     Indication: HIV INFECTION
     Route: 048
     Dates: start: 201501
  5. DUROGESIC [Interacting]
     Active Substance: FENTANYL
     Indication: PAIN
     Route: 062
     Dates: start: 201507, end: 20150908
  6. ISENTRESS [Concomitant]
     Active Substance: RALTEGRAVIR POTASSIUM
     Indication: HIV INFECTION
     Route: 065
  7. ISONIAZIDE [Concomitant]
     Active Substance: ISONIAZID
     Indication: TUBERCULOSIS
     Route: 065
  8. ZOPHREN [Concomitant]
     Active Substance: ONDANSETRON
     Indication: PRODUCT USED FOR UNKNOWN INDICATION
     Dosage: AS NEEDED
     Route: 065
  9. RIFABUTINE [Concomitant]
     Indication: TUBERCULOSIS
     Route: 065
  10. SERESTA [Concomitant]
     Active Substance: OXAZEPAM
     Indication: PRODUCT USED FOR UNKNOWN INDICATION
     Route: 065
     Dates: start: 20150904
  11. FLUOXETIN [Interacting]
     Active Substance: FLUOXETINE HYDROCHLORIDE
     Indication: PRODUCT USED FOR UNKNOWN INDICATION
     Route: 048
     Dates: start: 20150807
  12. VITAMIN E [Concomitant]
     Active Substance: .ALPHA.-TOCOPHEROL
     Indication: PRODUCT USED FOR UNKNOWN INDICATION
  13. PREZISTA [Interacting]
     Active Substance: DARUNAVIR ETHANOLATE
     Indication: HIV INFECTION
     Route: 048
     Dates: start: 201501
  14. ZECLAR [Concomitant]
     Active Substance: CLARITHROMYCIN
     Indication: DIALYSIS
     Dosage: 300 MG AFTER EACH DIALYSIS SESSION (MONDAY, TUESDAY, THURSDAY AND SATURDAY)
     Route: 065
  15. PARACETAMOL [Concomitant]
     Active Substance: ACETAMINOPHEN
     Indication: PRODUCT USED FOR UNKNOWN INDICATION
     Dosage: AS NEEDED
     Route: 065
  16. SPECIAFOLDINE [Concomitant]
     Active Substance: FOLIC ACID
     Indication: PRODUCT USED FOR UNKNOWN INDICATION
     Route: 065
  17. FLUOXETIN [Interacting]
     Active Substance: FLUOXETINE HYDROCHLORIDE
     Route: 048
  18. INTELENCE [Concomitant]
     Active Substance: ETRAVIRINE
     Indication: HIV INFECTION
     Route: 065
  19. ARANESP [Concomitant]
     Active Substance: DARBEPOETIN ALFA
     Indication: DIALYSIS
     Route: 065
  20. SOLUPRED [Concomitant]
     Active Substance: PREDNISOLONE
     Indication: HIV INFECTION
     Route: 065

REACTIONS (4)
  - Asthenia [Recovering/Resolving]
  - Disturbance in attention [Recovering/Resolving]
  - Somnolence [Recovering/Resolving]
  - Drug interaction [Recovering/Resolving]
